FAERS Safety Report 16393846 (Version 6)
Quarter: 2025Q1

REPORT INFORMATION
  Report Type: Spontaneous
  Country: US (occurrence: US)
  Receive Date: 20190605
  Receipt Date: 20250110
  Transmission Date: 20250409
  Serious: No
  Sender: MYLAN
  Company Number: US-PFIZER INC-2019234361

PATIENT
  Sex: Female
  Weight: 61 kg

DRUGS (1)
  1. ELETRIPTAN [Suspect]
     Active Substance: ELETRIPTAN
     Indication: Product used for unknown indication
     Route: 048

REACTIONS (3)
  - Drug hypersensitivity [Unknown]
  - Drug ineffective [Unknown]
  - Product substitution issue [Unknown]
